FAERS Safety Report 7706637-6 (Version None)
Quarter: 2011Q3

REPORT INFORMATION
  Report Type: 
  Country: None (occurrence: None)
  Receive Date: 20110824
  Receipt Date: 20110815
  Transmission Date: 20111222
  Serious: Yes (Hospitalization, Other)
  Sender: FDA-Public Use
  Company Number: US-JNJFOC-20110807848

PATIENT
  Sex: Male
  Weight: 95.26 kg

DRUGS (6)
  1. CONCERTA [Suspect]
     Route: 048
  2. CONCERTA [Suspect]
     Route: 048
  3. CONCERTA [Suspect]
     Indication: ATTENTION DEFICIT/HYPERACTIVITY DISORDER
     Route: 048
  4. METHYLPHENIDATE HCL [Suspect]
     Indication: ATTENTION DEFICIT/HYPERACTIVITY DISORDER
     Route: 048
     Dates: start: 20110701, end: 20110801
  5. LISINOPRIL [Concomitant]
     Indication: HYPERTENSION
     Route: 048
  6. CONCERTA [Suspect]
     Route: 048

REACTIONS (7)
  - DEPRESSION [None]
  - HEADACHE [None]
  - CHOLELITHIASIS [None]
  - PSYCHOMOTOR HYPERACTIVITY [None]
  - MUSCLE TIGHTNESS [None]
  - DIZZINESS [None]
  - HEART RATE INCREASED [None]
